FAERS Safety Report 10427877 (Version 2)
Quarter: 2014Q3

REPORT INFORMATION
  Report Type: Spontaneous
  Country: IT (occurrence: IT)
  Receive Date: 20140903
  Receipt Date: 20140929
  Transmission Date: 20150326
  Serious: Yes (Hospitalization)
  Sender: FDA-Public Use
  Company Number: IT-BRISTOL-MYERS SQUIBB COMPANY-21355375

PATIENT
  Age: 77 Year
  Sex: Male

DRUGS (8)
  1. DILATREND [Concomitant]
     Active Substance: CARVEDILOL
  2. TRIATEC [Concomitant]
     Active Substance: RAMIPRIL
  3. FOSAVANCE [Concomitant]
     Active Substance: ALENDRONATE SODIUM\CHOLECALCIFEROL
  4. DELTACORTENE [Concomitant]
     Active Substance: PREDNISONE
  5. LASIX [Concomitant]
     Active Substance: FUROSEMIDE
  6. RANITIDINE [Concomitant]
     Active Substance: RANITIDINE\RANITIDINE HYDROCHLORIDE
  7. COUMADIN [Suspect]
     Active Substance: WARFARIN SODIUM
     Indication: PULMONARY EMBOLISM
     Dosage: 1DF=1 UNIT
     Route: 048
     Dates: start: 20100301, end: 20140723
  8. SPIRIVA [Concomitant]
     Active Substance: TIOTROPIUM BROMIDE MONOHYDRATE

REACTIONS (4)
  - Spontaneous haematoma [Recovered/Resolved]
  - Swelling [Recovered/Resolved]
  - Axillary pain [Recovered/Resolved]
  - Pyrexia [Recovered/Resolved]

NARRATIVE: CASE EVENT DATE: 20140721
